FAERS Safety Report 13416070 (Version 1)
Quarter: 2017Q2

REPORT INFORMATION
  Report Type: Spontaneous
  Country: US (occurrence: US)
  Receive Date: 20170406
  Receipt Date: 20170406
  Transmission Date: 20170830
  Serious: No
  Sender: FDA-Public Use
  Company Number: US-BAYER-2017-066405

PATIENT
  Age: 46 Year
  Sex: Female

DRUGS (1)
  1. FINACEA [Suspect]
     Active Substance: AZELAIC ACID
     Indication: ROSACEA
     Dosage: UNK UNK, BID
     Route: 062
     Dates: start: 20140519, end: 20141028

REACTIONS (3)
  - Drug ineffective [None]
  - Ocular rosacea [None]
  - Burning sensation [None]

NARRATIVE: CASE EVENT DATE: 2014
